FAERS Safety Report 5104609-1 (Version None)
Quarter: 2006Q3

REPORT INFORMATION
  Report Type: 
  Country: None (occurrence: None)
  Receive Date: 20060914
  Receipt Date: 20060523
  Transmission Date: 20061208
  Serious: No
  Sender: FDA-Public Use
  Company Number: US-BRISTOL-MYERS SQUIBB COMPANY-13386883

PATIENT
  Age: 48 Year
  Sex: Female
  Weight: 75 kg

DRUGS (4)
  1. BUSPAR [Suspect]
     Indication: ANXIETY
     Dates: start: 20050101
  2. TRILEPTAL [Concomitant]
  3. NAVANE [Concomitant]
  4. SYNTHROID [Concomitant]

REACTIONS (1)
  - TRIGEMINAL NEURALGIA [None]
